FAERS Safety Report 7378290-5 (Version None)
Quarter: 2011Q1

REPORT INFORMATION
  Report Type: 
  Country: None (occurrence: None)
  Receive Date: 20110328
  Receipt Date: 20110317
  Transmission Date: 20110831
  Serious: Yes (Hospitalization)
  Sender: FDA-Public Use
  Company Number: JP-ROCHE-767465

PATIENT
  Sex: Male
  Weight: 57 kg

DRUGS (30)
  1. TOCILIZUMAB [Suspect]
     Route: 041
     Dates: start: 20080825, end: 20080825
  2. TOCILIZUMAB [Suspect]
     Route: 041
     Dates: start: 20081201, end: 20081201
  3. ISONIAZID [Concomitant]
     Dosage: FORM : PERORAL AGENT
     Route: 048
     Dates: end: 20091207
  4. ZYLORIC [Concomitant]
     Dosage: FORM : PERORAL AGENT
     Route: 048
     Dates: start: 20090713, end: 20091207
  5. TAMSULOSIN HCL [Concomitant]
     Dosage: FORM : PERORAL AGENT
     Route: 048
     Dates: start: 20091030, end: 20091207
  6. TOCILIZUMAB [Suspect]
     Route: 041
     Dates: start: 20091109, end: 20091109
  7. VOLTAREN [Concomitant]
     Dosage: FORM : JELLY  PROPER QUANTITY
     Route: 003
     Dates: end: 20081229
  8. AZULFIDINE [Concomitant]
     Dosage: FORM : PERORAL AGENT
     Route: 048
     Dates: end: 20081229
  9. COVERSYL [Concomitant]
     Dosage: FORM : PERORAL AGENT
     Route: 048
     Dates: end: 20091029
  10. TOCILIZUMAB [Suspect]
     Route: 041
     Dates: start: 20081027, end: 20081027
  11. ALFAROL [Concomitant]
     Dosage: DOSE : 0.5 MCL
     Route: 048
     Dates: start: 20081230, end: 20091207
  12. PROTECADIN [Concomitant]
     Route: 048
     Dates: start: 20090810, end: 20091207
  13. TOCILIZUMAB [Suspect]
     Route: 041
     Dates: start: 20080728, end: 20080728
  14. TOCILIZUMAB [Suspect]
     Route: 041
     Dates: start: 20081226, end: 20090914
  15. MOBIC [Concomitant]
     Dosage: FORM : PERORAL AGENT
     Route: 048
     Dates: end: 20091207
  16. ALFAROL [Concomitant]
     Dosage: FORM : PERORAL AGENT
     Route: 048
     Dates: start: 20081230, end: 20091207
  17. GASTER D [Concomitant]
     Dosage: FORM : PERORAL AGENT
     Route: 048
     Dates: start: 20081230, end: 20090809
  18. KETOPROFEN [Concomitant]
     Dosage: FORM : TAPE
     Route: 061
     Dates: end: 20081229
  19. TOCILIZUMAB [Suspect]
     Indication: RHEUMATOID ARTHRITIS
     Route: 041
     Dates: start: 20080630, end: 20080730
  20. TOCILIZUMAB [Suspect]
     Route: 041
     Dates: start: 20080929, end: 20080929
  21. THIOLA [Concomitant]
     Dosage: FORM : PERORAL AGENT
     Route: 048
     Dates: end: 20090614
  22. LAC B [Concomitant]
     Dosage: FORM : PERORAL AGENT
     Route: 048
     Dates: end: 20091113
  23. MEILAX [Concomitant]
     Dosage: FORM : PERORAL AGENT
     Route: 048
     Dates: end: 20091207
  24. HIRUDOID [Concomitant]
     Dosage: FORM : EXTERNAL PREPARATION  PROPER QUANTITY
     Route: 061
     Dates: start: 20081230, end: 20091014
  25. BAKTAR [Concomitant]
     Dosage: FORM : PERORAL AGENT
     Route: 048
     Dates: start: 20081230, end: 20091207
  26. AZULFIDINE [Concomitant]
     Route: 048
     Dates: start: 20081230, end: 20090614
  27. PREDNISOLONE [Concomitant]
     Route: 048
     Dates: end: 20091207
  28. CONIEL [Concomitant]
     Dosage: FORM : PERORAL AGENT
     Route: 048
     Dates: start: 20081230, end: 20091029
  29. BONALON [Concomitant]
     Dosage: FORM : PERORAL AGENT
     Route: 048
     Dates: start: 20081230, end: 20091014
  30. NAPAGELN [Concomitant]
     Dosage: PROPER QUANTITY
     Route: 003
     Dates: start: 20081230, end: 20091106

REACTIONS (4)
  - GAIT DISTURBANCE [None]
  - ANAEMIA [None]
  - WHITE BLOOD CELL COUNT DECREASED [None]
  - MUSCLE HAEMORRHAGE [None]
